FAERS Safety Report 4963838-8 (Version None)
Quarter: 2006Q1

REPORT INFORMATION
  Report Type: 
  Country: None (occurrence: None)
  Receive Date: 20060330
  Receipt Date: 20060320
  Transmission Date: 20060701
  Serious: Yes (Hospitalization)
  Sender: FDA-Public Use
  Company Number: 223240

PATIENT
  Sex: Female

DRUGS (2)
  1. AVASTIN [Suspect]
     Indication: BREAST CANCER
     Dosage: 10 MG/KG,; 5 MG/KG,
  2. DOXIL [Suspect]
     Indication: BREAST CANCER

REACTIONS (4)
  - CELLULITIS [None]
  - EPISTAXIS [None]
  - HEADACHE [None]
  - RED MAN SYNDROME [None]
